FAERS Safety Report 7725738-X (Version None)
Quarter: 2011Q3

REPORT INFORMATION
  Report Type: 
  Country: None (occurrence: None)
  Receive Date: 20110830
  Receipt Date: 20110815
  Transmission Date: 20111222
  Serious: Yes (Other)
  Sender: FDA-Public Use
  Company Number: US-1187242

PATIENT

DRUGS (7)
  1. BSS [Suspect]
  2. BSS [Suspect]
  3. BSS [Suspect]
     Indication: CATARACT OPERATION
     Dosage: INTRAOCULAR, INTRAOCULAR, INTRAOCULAR, INTRAOCULAR
     Route: 031
     Dates: start: 20110713, end: 20110713
  4. BSS [Suspect]
     Indication: CATARACT OPERATION
     Dosage: INTRAOCULAR, INTRAOCULAR, INTRAOCULAR, INTRAOCULAR
     Route: 031
     Dates: start: 20110713, end: 20110713
  5. BSS [Suspect]
     Indication: CATARACT OPERATION
     Dosage: INTRAOCULAR, INTRAOCULAR, INTRAOCULAR, INTRAOCULAR
     Route: 031
     Dates: start: 20110713, end: 20110713
  6. BSS [Suspect]
     Indication: CATARACT OPERATION
     Dosage: INTRAOCULAR, INTRAOCULAR, INTRAOCULAR, INTRAOCULAR
     Route: 031
     Dates: start: 20110713, end: 20110713
  7. BSS [Suspect]

REACTIONS (1)
  - TOXIC ANTERIOR SEGMENT SYNDROME [None]
